FAERS Safety Report 15922474 (Version 2)
Quarter: 2019Q1

REPORT INFORMATION
  Report Type: Spontaneous
  Country: US (occurrence: US)
  Receive Date: 20190205
  Receipt Date: 20190219
  Transmission Date: 20190417
  Serious: No
  Sender: FDA-Public Use
  Company Number: US-ALLERGAN-1812092US

PATIENT
  Sex: Female

DRUGS (2)
  1. BOTOX [Suspect]
     Active Substance: ONABOTULINUMTOXINA
     Dosage: ACTUAL: 40 UNITS TO JAW AND 80 UNITS TO NECK
     Route: 030
     Dates: start: 20180319, end: 20180319
  2. BOTOX [Suspect]
     Active Substance: ONABOTULINUMTOXINA
     Indication: OROMANDIBULAR DYSTONIA
     Dosage: UNK, SINGLE
     Route: 030

REACTIONS (4)
  - Joint stiffness [Recovered/Resolved]
  - Posture abnormal [Unknown]
  - Off label use [Unknown]
  - Dysphagia [Recovered/Resolved]
